FAERS Safety Report 11777727 (Version 1)
Quarter: 2015Q4

REPORT INFORMATION
  Report Type: Spontaneous
  Country: US (occurrence: None)
  Receive Date: 20151124
  Receipt Date: 20151124
  Transmission Date: 20160304
  Serious: Yes (Other)
  Sender: FDA-Public Use
  Company Number: None

PATIENT
  Age: 36 Year
  Sex: Female
  Weight: 84.5 kg

DRUGS (1)
  1. NUEDEXTA [Suspect]
     Active Substance: DEXTROMETHORPHAN HYDROBROMIDE\QUINIDINE SULFATE
     Indication: DEPRESSION
     Dosage: 20/10 MG  ONCE A DAY BY MOUTH
     Route: 048
     Dates: start: 20151026, end: 20151028

REACTIONS (2)
  - Depressive symptom [None]
  - Insomnia [None]

NARRATIVE: CASE EVENT DATE: 20151103
